FAERS Safety Report 5455116-8 (Version None)
Quarter: 2007Q3

REPORT INFORMATION
  Report Type: 
  Country: None (occurrence: None)
  Receive Date: 20070914
  Receipt Date: 20070904
  Transmission Date: 20080115
  Serious: Yes (Hospitalization)
  Sender: FDA-Public Use
  Company Number: TCI2007A04257

PATIENT
  Age: 65 Year
  Sex: Male

DRUGS (1)
  1. ACTOS [Suspect]
     Indication: DIABETES MELLITUS
     Dosage: 30 MG (30 MG, 1 D)  PER ORAL
     Route: 048
     Dates: start: 20060101, end: 20070801

REACTIONS (1)
  - DEEP VEIN THROMBOSIS [None]
